FAERS Safety Report 4772503-1 (Version None)
Quarter: 2005Q3

REPORT INFORMATION
  Report Type: 
  Country: None (occurrence: None)
  Receive Date: 20050916
  Receipt Date: 20050916
  Transmission Date: 20060218
  Serious: Yes (Life-Threatening, Hospitalization)
  Sender: FDA-Public Use
  Company Number: None

PATIENT
  Age: 77 Year
  Sex: Male

DRUGS (4)
  1. IMPRAMINE HCL [Suspect]
     Dosage: 20MG ONCE DAILY PO
     Route: 048
     Dates: start: 20050907, end: 20050914
  2. MUCINEX [Concomitant]
  3. PRILOSEC [Concomitant]
  4. MULTI-VITAMIN [Concomitant]

REACTIONS (1)
  - RENAL FAILURE ACUTE [None]
